FAERS Safety Report 9129013 (Version 1)
Quarter: 2013Q1

REPORT INFORMATION
  Report Type: Spontaneous
  Country: US (occurrence: US)
  Receive Date: 20130228
  Receipt Date: 20130228
  Transmission Date: 20140127
  Serious: No
  Sender: FDA-Public Use
  Company Number: US-ABBOTT-12P-163-0960812-00

PATIENT
  Sex: Male
  Weight: 86.26 kg

DRUGS (8)
  1. ANDROGEL 1.62% [Suspect]
     Indication: BLOOD TESTOSTERONE DECREASED
     Dosage: 1 PUMP ACTUATION DAILY
     Route: 061
     Dates: start: 201206
  2. ANDROGEL 1.62% [Suspect]
     Dosage: 2 PUMP ACTUATIONS DAILY
     Route: 061
     Dates: start: 201208, end: 201212
  3. ANDROGEL 1.62% [Suspect]
     Dosage: 1.5 PUMP ACTUATIONS DAILY
     Route: 061
     Dates: start: 201212
  4. SIMVASTATIN [Concomitant]
     Indication: BLOOD CHOLESTEROL INCREASED
  5. ESCITALOPRAM [Concomitant]
     Indication: NERVOUS SYSTEM DISORDER
  6. OMEPRAZOLE [Concomitant]
     Indication: DYSPEPSIA
  7. TRAZODONE [Concomitant]
     Indication: INSOMNIA
  8. TYLENOL [Concomitant]
     Indication: MUSCULOSKELETAL PAIN
     Dosage: AS NEEDED AT BEDTIME

REACTIONS (2)
  - Blood testosterone decreased [Recovered/Resolved]
  - Nipple pain [Recovered/Resolved]
